FAERS Safety Report 5904361-3 (Version None)
Quarter: 2008Q4

REPORT INFORMATION
  Report Type: 
  Country: None (occurrence: None)
  Receive Date: 20081001
  Receipt Date: 20080923
  Transmission Date: 20090506
  Serious: Yes (Other)
  Sender: FDA-Public Use
  Company Number: PHHY2008US22253

PATIENT
  Sex: Male

DRUGS (2)
  1. LIORESAL [Suspect]
     Indication: MUSCLE SPASTICITY
     Dosage: 260 UG, DAILY
     Route: 037
  2. LIORESAL [Suspect]
     Dosage: 120 UG DAILY
     Dates: start: 20080901

REACTIONS (3)
  - CATHETER PLACEMENT [None]
  - CATHETER RELATED COMPLICATION [None]
  - HYPERTONIA [None]
